FAERS Safety Report 17162606 (Version 1)
Quarter: 2019Q4

REPORT INFORMATION
  Report Type: Spontaneous
  Country: US (occurrence: US)
  Receive Date: 20191216
  Receipt Date: 20191216
  Transmission Date: 20200122
  Serious: Yes (Other)
  Sender: FDA-Public Use
  Company Number: None

PATIENT
  Age: 43 Year
  Sex: Female
  Weight: 120 kg

DRUGS (9)
  1. VANCOMYCIN 1.75 GM IV [Concomitant]
  2. LOPERAMIDE 4 MG PO [Concomitant]
  3. ONDANSETRON 4 MG IV [Concomitant]
  4. INSULIN LISPRO [Concomitant]
     Active Substance: INSULIN LISPRO
  5. METRONIDAZOLE 500 MG IV [Concomitant]
  6. PROPRANOLOL 40 MG PO DAILY [Concomitant]
  7. LEVOTHYROXINE 200 MCG PO DAILY [Concomitant]
  8. KETOROLAC 30 MG IV [Concomitant]
  9. SUMATRIPTAN. [Suspect]
     Active Substance: SUMATRIPTAN
     Indication: MIGRAINE
     Dosage: ?          OTHER FREQUENCY:ONE-TIME;?
     Route: 048
     Dates: start: 20191008, end: 20191008

REACTIONS (3)
  - Livedo reticularis [None]
  - Chills [None]
  - Cyanosis [None]

NARRATIVE: CASE EVENT DATE: 20191008
